FAERS Safety Report 4441694-4 (Version None)
Quarter: 2004Q3

REPORT INFORMATION
  Report Type: 
  Country: None (occurrence: None)
  Receive Date: 20040907
  Receipt Date: 20040616
  Transmission Date: 20050211
  Serious: Yes (Other)
  Sender: FDA-Public Use
  Company Number: PHNU2004DE02136

PATIENT
  Age: 54 Year
  Sex: Female
  Weight: 76 kg

DRUGS (2)
  1. GLEEVEC [Suspect]
     Indication: GASTROINTESTINAL STROMAL TUMOUR
     Dosage: 600MG/DAY
     Route: 048
     Dates: start: 20031008
  2. EUTHYROX [Concomitant]
     Indication: AUTOIMMUNE THYROIDITIS
     Dosage: 100MG/DAY
     Route: 048
     Dates: start: 20030522

REACTIONS (3)
  - BIOPSY SKIN [None]
  - NEOPLASM SKIN [None]
  - SKIN INDURATION [None]
